FAERS Safety Report 5718568-1 (Version None)
Quarter: 2008Q2

REPORT INFORMATION
  Report Type: 
  Country: None (occurrence: None)
  Receive Date: 20080425
  Receipt Date: 20080416
  Transmission Date: 20081010
  Serious: Yes (Other)
  Sender: FDA-Public Use
  Company Number: JP-WYE-H03791708

PATIENT
  Age: 5 Month
  Sex: Male

DRUGS (1)
  1. AMIODARONE HCL [Suspect]
     Route: 048
     Dates: start: 20071227

REACTIONS (1)
  - HEPATIC STEATOSIS [None]
